FAERS Safety Report 8611369 (Version 3)
Quarter: 2014Q1

REPORT INFORMATION
  Report Type: Report from Study
  Country: US (occurrence: US)
  Receive Date: 20120613
  Receipt Date: 20140129
  Transmission Date: 20141002
  Serious: Yes (Hospitalization, Other)
  Sender: FDA-Public Use
  Company Number: US-BIOGENIDEC-2012BI019599

PATIENT
  Age: 64 Year
  Sex: Male
  Weight: 77 kg

DRUGS (14)
  1. TYSABRI [Suspect]
     Indication: MULTIPLE SCLEROSIS
     Route: 042
     Dates: start: 20080430, end: 20120424
  2. ARICEPT [Concomitant]
     Indication: DEMENTIA
     Route: 048
     Dates: start: 20081229
  3. ARTANE [Concomitant]
     Indication: TREMOR
     Route: 048
     Dates: start: 20081216
  4. BACLOFEN [Concomitant]
     Indication: MUSCLE SPASTICITY
     Route: 048
     Dates: start: 20070619
  5. CELEXA [Concomitant]
     Indication: DEPRESSION
     Route: 048
     Dates: start: 20100812
  6. CRESTOR [Concomitant]
     Indication: BLOOD CHOLESTEROL
     Route: 048
     Dates: start: 20110906
  7. DITROPAN [Concomitant]
     Indication: BLADDER DISORDER
     Route: 048
     Dates: start: 20110523
  8. FLORICET [Concomitant]
     Indication: HEADACHE
     Dates: start: 20111220
  9. KEPPRA [Concomitant]
     Indication: CONVULSION
     Route: 048
     Dates: start: 20110421, end: 20120411
  10. LOMOTIL [Concomitant]
  11. NEURONTIN [Concomitant]
  12. OMEPRAZOLE [Concomitant]
  13. PLAVIX [Concomitant]
  14. VIMPAT [Concomitant]

REACTIONS (2)
  - B-cell lymphoma [Not Recovered/Not Resolved]
  - Post procedural haematoma [Recovered/Resolved]
